FAERS Safety Report 10252607 (Version 18)
Quarter: 2015Q2

REPORT INFORMATION
  Report Type: Report from Study
  Country: CA (occurrence: CA)
  Receive Date: 20140623
  Receipt Date: 20150618
  Transmission Date: 20150821
  Serious: Yes (Other)
  Sender: FDA-Public Use
  Company Number: CA-SA-2014SA020528

PATIENT
  Age: 69 Year
  Sex: Female
  Weight: 113 kg

DRUGS (23)
  1. HERCEPTIN [Suspect]
     Active Substance: TRASTUZUMAB
     Indication: BREAST CANCER METASTATIC
     Route: 042
     Dates: start: 20130823
  2. KADCYLA [Suspect]
     Active Substance: ADO-TRASTUZUMAB EMTANSINE
     Indication: HER-2 POSITIVE BREAST CANCER
     Route: 042
     Dates: start: 20141022
  3. ROSUVASTATIN CALCIUM. [Concomitant]
     Active Substance: ROSUVASTATIN CALCIUM
  4. CRESTOR [Concomitant]
     Active Substance: ROSUVASTATIN CALCIUM
     Dosage: TREATMENT START DATE:: SINCE 10 YEARS AGO
     Dates: start: 2005
  5. DEXAMETHASONE. [Concomitant]
     Active Substance: DEXAMETHASONE
     Route: 048
  6. PERJETA [Suspect]
     Active Substance: PERTUZUMAB
     Indication: HER-2 POSITIVE BREAST CANCER
     Route: 042
     Dates: end: 20140925
  7. PANTOLOC [Concomitant]
     Active Substance: PANTOPRAZOLE SODIUM
     Indication: GASTROOESOPHAGEAL REFLUX DISEASE
     Dates: start: 2013
  8. CLONAZEPAM. [Concomitant]
     Active Substance: CLONAZEPAM
     Route: 048
  9. DECADRON [Concomitant]
     Active Substance: DEXAMETHASONE
     Dates: start: 201309
  10. VITAMIN C [Concomitant]
     Active Substance: ASCORBIC ACID
     Dosage: TREATMENT START DATE: SINCE 20 YEARS AGO
  11. CLONAZEPAM. [Concomitant]
     Active Substance: CLONAZEPAM
     Dates: start: 2009
  12. HERCEPTIN [Suspect]
     Active Substance: TRASTUZUMAB
     Indication: BREAST CANCER METASTATIC
     Dosage: DOSAGE-UNKNOWN DOSE (21DEC09)/896 MG (23AUG-2013)
     Route: 042
     Dates: start: 20091201
  13. CELEBREX [Concomitant]
     Active Substance: CELECOXIB
  14. CALCIUM [Concomitant]
     Active Substance: CALCIUM
     Dates: start: 201309
  15. PRESERVISION [Concomitant]
     Active Substance: MINERALS\VITAMINS
     Indication: MACULAR DEGENERATION
     Dosage: TREATMENT START DATE: SINCE 5 YEARS AGO
  16. PAXIL [Concomitant]
     Active Substance: PAROXETINE HYDROCHLORIDE
     Dates: start: 2009
  17. PERJETA [Suspect]
     Active Substance: PERTUZUMAB
     Indication: HER-2 POSITIVE BREAST CANCER
     Route: 065
     Dates: start: 20130821
  18. PAXIL [Concomitant]
     Active Substance: PAROXETINE HYDROCHLORIDE
     Route: 048
  19. EFFEXOR [Concomitant]
     Active Substance: VENLAFAXINE HYDROCHLORIDE
  20. TAXOTERE [Suspect]
     Active Substance: DOCETAXEL
     Indication: BREAST CANCER METASTATIC
     Route: 042
     Dates: start: 20130913
  21. ZESTORETIC [Concomitant]
     Active Substance: HYDROCHLOROTHIAZIDE\LISINOPRIL
     Dosage: 20 YEARS AGO
     Dates: start: 1995
  22. VITAMIN D [Concomitant]
     Active Substance: CHOLECALCIFEROL
     Dates: start: 201309
  23. VITAMIN B [Concomitant]
     Active Substance: VITAMIN B
     Dosage: TREATMENT START DATE: SINCE 10 YEARS AGO
     Dates: start: 2005

REACTIONS (37)
  - Fracture [Not Recovered/Not Resolved]
  - Gingival operation [Recovered/Resolved]
  - Unevaluable event [Not Recovered/Not Resolved]
  - Muscle spasms [Unknown]
  - Pruritus [Not Recovered/Not Resolved]
  - Rhinorrhoea [Recovered/Resolved]
  - Peripheral swelling [Not Recovered/Not Resolved]
  - Face oedema [Not Recovered/Not Resolved]
  - Poor venous access [Recovered/Resolved]
  - Dyspnoea [Not Recovered/Not Resolved]
  - Pyrexia [Recovered/Resolved]
  - Gingivitis [Unknown]
  - Rectal haemorrhage [Unknown]
  - Diarrhoea [Not Recovered/Not Resolved]
  - Pain in extremity [Unknown]
  - Hypoaesthesia [Not Recovered/Not Resolved]
  - Myalgia [Unknown]
  - Nasopharyngitis [Recovered/Resolved]
  - Cough [Not Recovered/Not Resolved]
  - Tooth extraction [Unknown]
  - Fungal infection [Unknown]
  - Fatigue [Unknown]
  - Headache [Recovered/Resolved]
  - Weight decreased [Not Recovered/Not Resolved]
  - Dysgeusia [Unknown]
  - Bone pain [Recovered/Resolved]
  - Epistaxis [Unknown]
  - Tooth disorder [Unknown]
  - Tumour marker increased [Not Recovered/Not Resolved]
  - Dry skin [Not Recovered/Not Resolved]
  - Paraesthesia [Not Recovered/Not Resolved]
  - Hypertension [Unknown]
  - Dermatitis [Recovered/Resolved]
  - Malaise [Not Recovered/Not Resolved]
  - Gingival swelling [Unknown]
  - Dry mouth [Unknown]
  - Chest pain [Recovered/Resolved]

NARRATIVE: CASE EVENT DATE: 201312
